FAERS Safety Report 4364773-9 (Version None)
Quarter: 2004Q2

REPORT INFORMATION
  Report Type: 
  Country: None (occurrence: None)
  Receive Date: 20040514
  Receipt Date: 20031009
  Transmission Date: 20050107
  Serious: Yes (Hospitalization, Disabling)
  Sender: FDA-Public Use
  Company Number: WAES 0310USA01337

PATIENT
  Age: 47 Year
  Sex: Male
  Weight: 94.8018 kg

DRUGS (37)
  1. CRIXIVAN [Suspect]
     Dosage: 800 MG/TID/PO
     Route: 048
     Dates: start: 19960501, end: 19980101
  2. BACTRIM DS [Concomitant]
  3. COMBIVIR [Concomitant]
  4. DESENEX [Concomitant]
  5. ACETAMINOPHEN [Concomitant]
  6. ASPIRIN [Concomitant]
  7. ATORVASTATIN CALCIUM [Concomitant]
  8. AZITHROMYCIN [Concomitant]
  9. BACITRACIN [Concomitant]
  10. BECLOMETHASONE DIPROPIONATE [Concomitant]
  11. CALCIUM CARBONATE [Concomitant]
  12. CEPHALEXIN [Concomitant]
  13. CHLORPHENIRAMINE MALEATE [Concomitant]
  14. CITALOPRAM [Concomitant]
  15. DIDANOSINE [Concomitant]
  16. GANCICLOVIR [Concomitant]
  17. ISONIAZID [Concomitant]
  18. ISOSORBIDE DINITRATE [Concomitant]
  19. LAMIVUDINE [Concomitant]
  20. LANSOPRAZOLE [Concomitant]
  21. LORAZEPAM [Concomitant]
  22. METOPROLOL TARTRATE [Concomitant]
  23. MIRTAZAPINE [Concomitant]
  24. NEFAZODONE HCL [Concomitant]
  25. NEVIRAPINE [Concomitant]
  26. NITROGLYCERIN [Concomitant]
  27. OLANZAPINE [Concomitant]
  28. PNEUMOCOCCAL VACCINE (UNSPECIFED [Concomitant]
  29. PYRIDOXINE [Concomitant]
  30. RABEPRAZOLE SODIUM [Concomitant]
  31. RISPERIDONE [Concomitant]
  32. SIMVASTATIN [Concomitant]
  33. STAVUDINE [Concomitant]
  34. TEMAZEPAM [Concomitant]
  35. THIOTHIXENE [Concomitant]
  36. ZIDOVUDINE [Concomitant]
  37. ZIPRASIDONE HYDROCHLORIDE [Concomitant]

REACTIONS (3)
  - FAT REDISTRIBUTION [None]
  - HYPERTENSION [None]
  - SLEEP DISORDER [None]
